FAERS Safety Report 9350437 (Version 2)
Quarter: 2013Q3

REPORT INFORMATION
  Report Type: Spontaneous
  Country: US (occurrence: US)
  Receive Date: 20130617
  Receipt Date: 20130708
  Transmission Date: 20140515
  Serious: Yes (Hospitalization)
  Sender: FDA-Public Use
  Company Number: US-PFIZER INC-2013175170

PATIENT
  Age: 57 Year
  Sex: Female

DRUGS (4)
  1. CELEBREX [Suspect]
     Indication: MUSCULOSKELETAL PAIN
     Dosage: 200 MG, 1X/DAY
     Route: 048
     Dates: start: 20130508, end: 201305
  2. CELEBREX [Suspect]
     Indication: PAIN IN EXTREMITY
     Dosage: UNK
     Dates: start: 2013
  3. BENADRYL [Suspect]
     Indication: PRURITUS
     Dosage: 50 MG, UNK
     Route: 048
  4. BENADRYL [Suspect]
     Indication: HYPERSENSITIVITY
     Dosage: 25 MG, AS NEEDED EVERY 6 HRS
     Route: 048

REACTIONS (14)
  - Anaphylactic reaction [Unknown]
  - Urticaria [Recovered/Resolved]
  - Pharyngeal oedema [Unknown]
  - Paraesthesia oral [Unknown]
  - Hypoaesthesia oral [Unknown]
  - Circumoral oedema [Recovered/Resolved]
  - Lip swelling [Unknown]
  - Speech disorder [Unknown]
  - Hypotension [Unknown]
  - Dizziness [Unknown]
  - Vomiting [Unknown]
  - Erythema [Unknown]
  - Chills [Recovered/Resolved]
  - Feeling cold [Recovered/Resolved]
